FAERS Safety Report 20776393 (Version 1)
Quarter: 2022Q2

REPORT INFORMATION
  Report Type: Spontaneous
  Country: SE (occurrence: SE)
  Receive Date: 20220502
  Receipt Date: 20220502
  Transmission Date: 20220721
  Serious: Yes (Other)
  Sender: FDA-Public Use
  Company Number: SE-NOVARTISPH-NVSC2022SE099776

PATIENT
  Sex: Female

DRUGS (1)
  1. SUMATRIPTAN [Suspect]
     Active Substance: SUMATRIPTAN
     Indication: Migraine
     Dosage: 1-2 TABLET X 1 WHEN NEEDED, ABOY 10 DAYS A MONTH (STARTED DRUG SINCE 1990^S)
     Route: 048

REACTIONS (1)
  - Transient ischaemic attack [Unknown]
